FAERS Safety Report 10256047 (Version 2)
Quarter: 2014Q3

REPORT INFORMATION
  Report Type: Spontaneous
  Country: US (occurrence: US)
  Receive Date: 20140624
  Receipt Date: 20140702
  Transmission Date: 20150326
  Serious: No
  Sender: FDA-Public Use
  Company Number: US-009507513-1405USA003871

PATIENT
  Sex: Female

DRUGS (2)
  1. COPPERTONE OIL FREE FACES SPF 15 [Suspect]
     Active Substance: AVOBENZONE\HOMOSALATE\OCTISALATE\OCTOCRYLENE
     Indication: PRODUCT USED FOR UNKNOWN INDICATION
     Dosage: UNK, UNKNOWN
     Route: 061
  2. COPPERTONE OIL FREE FACES SPF 15 [Suspect]
     Active Substance: AVOBENZONE\HOMOSALATE\OCTISALATE\OCTOCRYLENE
     Dosage: UNK
     Route: 061

REACTIONS (5)
  - Product expiration date issue [Unknown]
  - Pain [Recovering/Resolving]
  - Skin discolouration [Recovering/Resolving]
  - Expired product administered [Unknown]
  - Skin lesion [Recovering/Resolving]
